FAERS Safety Report 10542394 (Version 1)
Quarter: 2014Q4

REPORT INFORMATION
  Report Type: Spontaneous
  Country: US (occurrence: US)
  Receive Date: 20141026
  Receipt Date: 20141026
  Transmission Date: 20150529
  Serious: No
  Sender: FDA-Public Use
  Company Number: US-009507513-1410USA006413

PATIENT
  Age: 76 Year
  Sex: Female
  Weight: 64.4 kg

DRUGS (1)
  1. ZETIA [Suspect]
     Active Substance: EZETIMIBE
     Dosage: 10 MG, UNK
     Route: 048
     Dates: start: 201401

REACTIONS (2)
  - Pain in extremity [Unknown]
  - Muscle spasms [Unknown]

NARRATIVE: CASE EVENT DATE: 20141007
